FAERS Safety Report 9227170 (Version 2)
Quarter: 2013Q2

REPORT INFORMATION
  Report Type: Spontaneous
  Country: US (occurrence: None)
  Receive Date: 20130410
  Receipt Date: 20130415
  Transmission Date: 20140414
  Serious: Yes (Hospitalization)
  Sender: FDA-Public Use
  Company Number: 2013US-004623

PATIENT
  Age: 54 Year
  Sex: Male
  Weight: 102 kg

DRUGS (19)
  1. OMONTYS [Suspect]
     Indication: NEPHROGENIC ANAEMIA
     Route: 042
     Dates: start: 20121211, end: 20121211
  2. RENVELA (SEVELAMER CARBONATE) [Concomitant]
  3. LISINOPRIL (LISINOPRIL) [Concomitant]
  4. METOPROLOL (METOPROLOL) [Concomitant]
  5. LOSARTAN (LOSARTAN) [Concomitant]
  6. CARVEDILOL (CARVEDILOL) [Concomitant]
  7. ASPIRIN (ACETYLSALICYCLIC ACID) [Concomitant]
  8. LANTUS (INSULIN GLARGINE) [Concomitant]
  9. NOVOLOG (INSULIN ASPART) [Concomitant]
  10. DULCOLAX (BISACODYL) [Concomitant]
  11. AMLODIPINE (AMLODIPINE) [Concomitant]
  12. DEXILANT (DEXLANSOPRAZOLE) [Concomitant]
  13. ZEMPLAR (PARICALCITOL) [Concomitant]
  14. LIPITOR (ATORVASTATIN CALCIUM) [Concomitant]
  15. PLAVIX (CLOPIDOGREL BUSULFATE) [Concomitant]
  16. LASIX (FUROSEMIDE) [Concomitant]
  17. PROTONIX (PANTOPRAZOLE SODIUM SESQUIHYDRATE) [Concomitant]
  18. NEPHROVITE (ASCORBIC ACID, BIOTIN, CALCIUM PANTOTHENATE, CYANOCOBALAMIN, FOLIC ACID, NICOTINAMIDE, PYRIDOXINE HYDROCHLORIDE, RIBOFLAVIN, THIAMINE HYDROCHLORIDE) [Concomitant]
  19. TUMS (CALCIUM CARBONATE) [Concomitant]

REACTIONS (8)
  - Coronary artery disease [None]
  - Fluid overload [None]
  - Thrombosis in device [None]
  - Hypotension [None]
  - Haemoglobin decreased [None]
  - Haematocrit decreased [None]
  - High density lipoprotein decreased [None]
  - Pyrexia [None]
